FAERS Safety Report 24166323 (Version 1)
Quarter: 2024Q3

REPORT INFORMATION
  Report Type: Spontaneous
  Country: IN (occurrence: IN)
  Receive Date: 20240802
  Receipt Date: 20240802
  Transmission Date: 20241017
  Serious: Yes (Other)
  Sender: ALKEM
  Company Number: IN-ALKEM LABORATORIES LIMITED-IN-ALKEM-2024-00471

PATIENT
  Age: 30 Year
  Sex: Male

DRUGS (9)
  1. LAMOTRIGINE [Suspect]
     Active Substance: LAMOTRIGINE
     Indication: Depression
     Dosage: 50 MILLIGRAM
     Route: 065
  2. LAMOTRIGINE [Suspect]
     Active Substance: LAMOTRIGINE
     Dosage: 100 MILLIGRAM
     Route: 065
  3. ESCITALOPRAM [Suspect]
     Active Substance: ESCITALOPRAM OXALATE
     Indication: Depression
     Dosage: 20 MILLIGRAM
     Route: 065
  4. ESCITALOPRAM [Suspect]
     Active Substance: ESCITALOPRAM OXALATE
     Dosage: UNK (TAPERED)
     Route: 065
  5. DIVALPROEX SODIUM [Concomitant]
     Active Substance: DIVALPROEX SODIUM
     Indication: Depression
     Dosage: 1 MILLIGRAM
     Route: 065
  6. DIVALPROEX SODIUM [Concomitant]
     Active Substance: DIVALPROEX SODIUM
     Dosage: 1500 MILLIGRAM (INCREASED)
     Route: 065
  7. RISPERIDONE [Concomitant]
     Active Substance: RISPERIDONE
     Indication: Depression
     Dosage: 6 MILLIGRAM
     Route: 065
  8. VALPROATE [Concomitant]
     Active Substance: VALPROIC ACID
     Indication: Depression
     Dosage: UNK
     Route: 065
  9. TRIHEXYPHENIDYL [Concomitant]
     Active Substance: TRIHEXYPHENIDYL
     Indication: Depression
     Dosage: 6 MILLIGRAM
     Route: 065

REACTIONS (2)
  - Agranulocytosis [Recovering/Resolving]
  - Therapy partial responder [Unknown]
